FAERS Safety Report 26088644 (Version 1)
Quarter: 2025Q4

REPORT INFORMATION
  Report Type: Spontaneous
  Country: US (occurrence: None)
  Receive Date: 20251125
  Receipt Date: 20251125
  Transmission Date: 20260118
  Serious: Yes (Other)
  Sender: FDA-CTU
  Company Number: None

PATIENT
  Sex: Male

DRUGS (3)
  1. VYNDAQEL [Suspect]
     Active Substance: TAFAMIDIS MEGLUMINE
     Indication: Amyloidosis
     Dosage: FREQUENCY : DAILY;?
     Route: 048
     Dates: start: 20250127
  2. JARDIANCE [Concomitant]
     Active Substance: EMPAGLIFLOZIN
  3. MULTAQ [Concomitant]
     Active Substance: DRONEDARONE

REACTIONS (1)
  - Bronchitis [None]
